FAERS Safety Report 14238275 (Version 2)
Quarter: 2017Q4

REPORT INFORMATION
  Report Type: Spontaneous
  Country: US (occurrence: US)
  Receive Date: 20171130
  Receipt Date: 20171206
  Transmission Date: 20180321
  Serious: No
  Sender: FDA-Public Use
  Company Number: US-PFIZER INC-2017509760

PATIENT
  Age: 68 Year
  Sex: Female
  Weight: 100 kg

DRUGS (1)
  1. ATROPINE SULFATE/DIPHENOXYLATE HYDROCHLORIDE [Suspect]
     Active Substance: ATROPINE SULFATE\DIPHENOXYLATE HYDROCHLORIDE
     Indication: HYPERTENSION
     Dosage: 2.5 MG, 2X/DAY
     Route: 048

REACTIONS (5)
  - Hot flush [Unknown]
  - Dry mouth [Unknown]
  - Dry skin [Unknown]
  - Product use in unapproved indication [Unknown]
  - Diarrhoea [Unknown]
